FAERS Safety Report 21884251 (Version 1)
Quarter: 2023Q1

REPORT INFORMATION
  Report Type: Spontaneous
  Country: US (occurrence: US)
  Receive Date: 20230119
  Receipt Date: 20230119
  Transmission Date: 20230417
  Serious: Yes (Other)
  Sender: FDA-Public Use
  Company Number: US-INTRA-CELLULAR THERAPIES, INC.-2023ICT00018

PATIENT
  Sex: Female

DRUGS (1)
  1. CAPLYTA [Suspect]
     Active Substance: LUMATEPERONE
     Dosage: 1 DOSAGE UNITS, SAMPLE AT 11PM
     Dates: start: 20230104, end: 20230104

REACTIONS (15)
  - Throat tightness [Unknown]
  - Drug hypersensitivity [Not Recovered/Not Resolved]
  - Pharyngeal swelling [Unknown]
  - Feeling hot [Not Recovered/Not Resolved]
  - Paraesthesia [Not Recovered/Not Resolved]
  - Pain [Unknown]
  - Eye pain [Unknown]
  - Ocular hyperaemia [Unknown]
  - Muscle tightness [Unknown]
  - Sensory disturbance [Unknown]
  - Vomiting [Unknown]
  - Nausea [Not Recovered/Not Resolved]
  - Headache [Not Recovered/Not Resolved]
  - Fatigue [Unknown]
  - Restlessness [Unknown]

NARRATIVE: CASE EVENT DATE: 20230105
